FAERS Safety Report 7953975-8 (Version None)
Quarter: 2011Q4

REPORT INFORMATION
  Report Type: 
  Country: None (occurrence: None)
  Receive Date: 20111202
  Receipt Date: 20111202
  Transmission Date: 20120403
  Serious: Yes (Hospitalization)
  Sender: FDA-Public Use
  Company Number: None

PATIENT
  Age: 23 Year
  Sex: Female
  Weight: 65.77 kg

DRUGS (1)
  1. LEVAQUIN [Suspect]
     Indication: SINUSITIS
     Dosage: 500 MG
     Route: 048

REACTIONS (7)
  - PARAESTHESIA [None]
  - ARTHRALGIA [None]
  - HYPOAESTHESIA [None]
  - BURNING SENSATION [None]
  - TENDONITIS [None]
  - MYALGIA [None]
  - PAIN [None]
